FAERS Safety Report 16375907 (Version 2)
Quarter: 2019Q3

REPORT INFORMATION
  Report Type: Spontaneous
  Country: CN (occurrence: CN)
  Receive Date: 20190531
  Receipt Date: 20190823
  Transmission Date: 20191004
  Serious: Yes (Other)
  Sender: FDA-Public Use
  Company Number: CN-009507513-1905CHN010994

PATIENT
  Age: 36 Year
  Weight: 51 kg

DRUGS (1)
  1. TIENAM [Suspect]
     Active Substance: CILASTATIN SODIUM\IMIPENEM
     Dosage: 250 MILLIGRAM, Q6H
     Dates: start: 2017

REACTIONS (4)
  - Hallucination, auditory [Recovering/Resolving]
  - Agitation [Recovering/Resolving]
  - Delirium [Recovering/Resolving]
  - Restlessness [Recovering/Resolving]

NARRATIVE: CASE EVENT DATE: 2017
